FAERS Safety Report 9335301 (Version 2)
Quarter: 2013Q4

REPORT INFORMATION
  Report Type: Spontaneous
  Country: FI (occurrence: FI)
  Receive Date: 20130606
  Receipt Date: 20131118
  Transmission Date: 20140711
  Serious: Yes (Hospitalization, Other)
  Sender: FDA-Public Use
  Company Number: PHHY2013FI036512

PATIENT
  Age: 70 Year
  Sex: Male

DRUGS (7)
  1. EXJADE [Suspect]
     Indication: MYELODYSPLASTIC SYNDROME
     Dosage: 1500 MG, QD
  2. EXJADE [Suspect]
     Dosage: 2000 MG, QD
     Dates: start: 20130312, end: 20130410
  3. EXJADE [Suspect]
     Dosage: 1000 MG, QD
     Dates: start: 201304
  4. FURESIS [Concomitant]
     Dosage: 40 MG, QD
  5. ENALAPRIL [Concomitant]
     Dosage: 20 MG, QD
  6. APURIN [Concomitant]
     Dosage: 300 MG, QD
  7. PREDNISOLON [Concomitant]
     Indication: RASH
     Dosage: UNK UKN, UNK
     Dates: start: 20130312

REACTIONS (8)
  - Dizziness [Unknown]
  - Prostate cancer [Unknown]
  - Prostatic specific antigen increased [Unknown]
  - Prostatomegaly [Unknown]
  - Malaise [Unknown]
  - Blood creatinine increased [Unknown]
  - Haemoglobin decreased [Unknown]
  - Serum ferritin increased [Unknown]
